FAERS Safety Report 8579244-3 (Version None)
Quarter: 2012Q3

REPORT INFORMATION
  Report Type: 
  Country: None (occurrence: None)
  Receive Date: 20120808
  Receipt Date: 20120606
  Transmission Date: 20120928
  Serious: Yes (Death)
  Sender: FDA-Public Use
  Company Number: FR-ROCHE-1095778

PATIENT
  Sex: Female

DRUGS (6)
  1. AVASTIN [Suspect]
     Indication: COLON CANCER METASTATIC
     Dosage: WITH FOLFERI; RECEIVED 4 CYCLES
     Dates: start: 20081118, end: 20090730
  2. AVASTIN [Suspect]
     Dosage: WITH FOLFOX;
     Dates: start: 20091008, end: 20091218
  3. FLUOROURACIL [Concomitant]
     Indication: COLON CANCER METASTATIC
     Dates: start: 20081118
  4. OXALIPLATIN [Concomitant]
     Indication: COLON CANCER METASTATIC
     Dates: start: 20091008, end: 20091218
  5. LEUCOVORIN CALCIUM [Concomitant]
     Indication: COLON CANCER METASTATIC
     Dates: start: 20081118
  6. IRINOTECAN HYDROCHLORIDE [Concomitant]
     Indication: COLON CANCER METASTATIC
     Dates: start: 20081118, end: 20090730

REACTIONS (4)
  - DISEASE PROGRESSION [None]
  - ASTHENIA [None]
  - PHLEBITIS [None]
  - DIARRHOEA [None]
